FAERS Safety Report 13483352 (Version 3)
Quarter: 2017Q2

REPORT INFORMATION
  Report Type: Spontaneous
  Country: US (occurrence: US)
  Receive Date: 20170424
  Receipt Date: 20170525
  Transmission Date: 20170830
  Serious: Yes (Hospitalization)
  Sender: FDA-Public Use
  Company Number: US-LUNDBECK-DKLU2029689

PATIENT
  Age: 67 Year
  Sex: Male

DRUGS (2)
  1. NORTHERA [Suspect]
     Active Substance: DROXIDOPA
     Route: 048
     Dates: start: 20170416
  2. NORTHERA [Suspect]
     Active Substance: DROXIDOPA
     Indication: ORTHOSTATIC HYPOTENSION
     Dosage: SCHEDULE C
     Route: 048
     Dates: start: 20170415

REACTIONS (3)
  - Head injury [Unknown]
  - Fall [Recovered/Resolved with Sequelae]
  - Loss of consciousness [Unknown]

NARRATIVE: CASE EVENT DATE: 20170417
